FAERS Safety Report 10671415 (Version 1)
Quarter: 2014Q4

REPORT INFORMATION
  Report Type: Spontaneous
  Country: US (occurrence: US)
  Receive Date: 20141223
  Receipt Date: 20141223
  Transmission Date: 20150529
  Serious: Yes (Other)
  Sender: FDA-Public Use
  Company Number: US-MYLANLABS-2014M1015304

PATIENT

DRUGS (4)
  1. NALOXONE [Concomitant]
     Active Substance: NALOXONE
     Dosage: 1MG
     Route: 065
  2. HALOPERIDOL. [Suspect]
     Active Substance: HALOPERIDOL
     Dosage: 5MG
     Route: 042
  3. IBOGAINE [Suspect]
     Active Substance: IBOGAINE
     Indication: DRUG DEPENDENCE
     Route: 048
  4. LORAZEPAM. [Concomitant]
     Active Substance: LORAZEPAM
     Dosage: 2MG
     Route: 042

REACTIONS (3)
  - Cardiac arrest [Recovering/Resolving]
  - Electrocardiogram QT prolonged [Recovering/Resolving]
  - Torsade de pointes [Recovering/Resolving]
